FAERS Safety Report 15523756 (Version 1)
Quarter: 2018Q4

REPORT INFORMATION
  Report Type: Spontaneous
  Country: US (occurrence: US)
  Receive Date: 20181019
  Receipt Date: 20181019
  Transmission Date: 20190205
  Serious: Yes (Other)
  Sender: FDA-Public Use
  Company Number: US-ENDO PHARMACEUTICALS INC-2017-005867

PATIENT
  Sex: Female

DRUGS (1)
  1. DIAZEPAM TABLETS 10 MG [Suspect]
     Active Substance: DIAZEPAM
     Indication: ANXIETY
     Dosage: UNK UNK, UNKNOWN
     Route: 065

REACTIONS (1)
  - Drug dependence [Unknown]
